FAERS Safety Report 4433177-2 (Version None)
Quarter: 2004Q3

REPORT INFORMATION
  Report Type: 
  Country: None (occurrence: None)
  Receive Date: 20040823
  Receipt Date: 20040811
  Transmission Date: 20050211
  Serious: Yes (Hospitalization, Other)
  Sender: FDA-Public Use
  Company Number: 2004056021

PATIENT
  Sex: Female
  Weight: 70.7 kg

DRUGS (12)
  1. NEURONTIN [Suspect]
     Indication: CONVULSION
     Dosage: 7200 MG (6 IN 1 D), ORAL
     Route: 048
  2. VENLAFAXINE HCL [Concomitant]
  3. TOPIRAMATE [Concomitant]
  4. FOLIC ACID [Concomitant]
  5. ACETAMINOPHEN [Concomitant]
  6. METRONIDAZOLE [Concomitant]
  7. ACYCLOVIR [Concomitant]
  8. LEVOTHYROXINE SODIUM [Concomitant]
  9. CALCIUM CARBONATE (CALCIUM CARBONATE) [Concomitant]
  10. LACTULOSE [Concomitant]
  11. CIPROFLOXACIN [Concomitant]
  12. BACTRIM [Concomitant]

REACTIONS (4)
  - ACUTE MYELOID LEUKAEMIA [None]
  - BLOOD DISORDER [None]
  - COLITIS [None]
  - DEHYDRATION [None]
